FAERS Safety Report 14883170 (Version 2)
Quarter: 2018Q2

REPORT INFORMATION
  Report Type: Spontaneous
  Country: DK (occurrence: DK)
  Receive Date: 20180511
  Receipt Date: 20180530
  Transmission Date: 20180711
  Serious: Yes (Life-Threatening, Hospitalization, Other)
  Sender: FDA-Public Use
  Company Number: DK-SA-2018SA132525

PATIENT
  Age: 71 Year
  Sex: Male
  Weight: 80 kg

DRUGS (7)
  1. OXALIPLATIN. [Suspect]
     Active Substance: OXALIPLATIN
     Indication: ADENOCARCINOMA
     Dosage: 92 MG/M2, QCY
     Dates: start: 201601, end: 2016
  2. OXALIPLATIN. [Suspect]
     Active Substance: OXALIPLATIN
     Indication: MUCINOUS ADENOCARCINOMA OF APPENDIX
     Dosage: 92 MG/M2,UNK
     Route: 033
     Dates: start: 201611, end: 201611
  3. OXALIPLATIN. [Suspect]
     Active Substance: OXALIPLATIN
     Indication: METASTASES TO PERITONEUM
  4. CAPECITABINE. [Suspect]
     Active Substance: CAPECITABINE
     Indication: METASTASES TO PERITONEUM
     Dosage: UNK UNK, QCY
     Dates: start: 201601, end: 2016
  5. OXALIPLATIN. [Suspect]
     Active Substance: OXALIPLATIN
     Indication: CARCINOID TUMOUR OF THE APPENDIX
     Dosage: 92 MG/M2,UNK
     Route: 065
     Dates: start: 201703, end: 201703
  6. CAPECITABINE. [Suspect]
     Active Substance: CAPECITABINE
     Indication: CARCINOID TUMOUR OF THE APPENDIX
  7. CAPECITABINE. [Suspect]
     Active Substance: CAPECITABINE
     Indication: MUCINOUS ADENOCARCINOMA OF APPENDIX

REACTIONS (9)
  - Abdominal pain [Recovering/Resolving]
  - Encapsulating peritoneal sclerosis [Recovering/Resolving]
  - Intestinal obstruction [Recovering/Resolving]
  - Neuropathy peripheral [Unknown]
  - Fibrosis [Recovering/Resolving]
  - Vomiting [Recovering/Resolving]
  - Small intestinal perforation [Recovered/Resolved]
  - Abdominal distension [Recovering/Resolving]
  - Pain [Recovering/Resolving]

NARRATIVE: CASE EVENT DATE: 2016
